FAERS Safety Report 12889725 (Version 3)
Quarter: 2016Q4

REPORT INFORMATION
  Report Type: Report from Study
  Country: None (occurrence: ZA)
  Receive Date: 20161027
  Receipt Date: 20161103
  Transmission Date: 20170207
  Serious: Yes (Hospitalization)
  Sender: FDA-Public Use
  Company Number: ZA-ABBVIE-16K-143-1762820-00

PATIENT
  Sex: Female
  Weight: 58 kg

DRUGS (1)
  1. HUMIRA [Suspect]
     Active Substance: ADALIMUMAB
     Indication: RHEUMATOID ARTHRITIS
     Route: 058

REACTIONS (6)
  - Hyperparathyroidism [Unknown]
  - Inappropriate schedule of drug administration [Unknown]
  - Parathyroid tumour benign [Unknown]
  - Hyperuricaemia [Unknown]
  - Scar [Unknown]
  - Hypercalcaemia [Unknown]
